FAERS Safety Report 4878056-1 (Version None)
Quarter: 2006Q1

REPORT INFORMATION
  Report Type: 
  Country: None (occurrence: None)
  Receive Date: 20060110
  Receipt Date: 20051228
  Transmission Date: 20060701
  Serious: Yes (Other)
  Sender: FDA-Public Use
  Company Number: 2005173510

PATIENT
  Sex: Male
  Weight: 90.7194 kg

DRUGS (4)
  1. LIPITOR [Suspect]
     Indication: BLOOD CHOLESTEROL INCREASED
     Dosage: 40 MG (40 MG, 1 IN 1 D), ORAL
     Route: 048
     Dates: start: 20030101
  2. ZOLOFT [Suspect]
     Indication: DEPRESSION
     Dosage: 25 MG (25 MG, 1 IN 1 D), ORAL
     Route: 048
     Dates: start: 20040101
  3. NAPROXEN [Concomitant]
  4. PROZAC [Concomitant]

REACTIONS (13)
  - BLINDNESS [None]
  - BLISTER [None]
  - DIABETES MELLITUS [None]
  - HEADACHE [None]
  - MULTIPLE ALLERGIES [None]
  - NAIL DISORDER [None]
  - NIGHT BLINDNESS [None]
  - OEDEMA PERIPHERAL [None]
  - ONYCHOMADESIS [None]
  - SKIN DISCOLOURATION [None]
  - SLUGGISHNESS [None]
  - VISION BLURRED [None]
  - WEIGHT INCREASED [None]
